FAERS Safety Report 4718733-6 (Version None)
Quarter: 2005Q3

REPORT INFORMATION
  Report Type: 
  Country: None (occurrence: None)
  Receive Date: 20050719
  Receipt Date: 20050707
  Transmission Date: 20060218
  Serious: Yes (Life-Threatening, Hospitalization, Disabling, Other)
  Sender: FDA-Public Use
  Company Number: 19417

PATIENT
  Age: 62 Year
  Sex: Male
  Weight: 48 kg

DRUGS (1)
  1. METHOTREXATE [Suspect]
     Indication: SQUAMOUS CELL CARCINOMA
     Dosage: 62MG/WEEKLY/IV
     Route: 042
     Dates: start: 20050609, end: 20050609

REACTIONS (5)
  - HYPERTENSION [None]
  - HYPONATRAEMIA [None]
  - PNEUMONIA [None]
  - SEPTIC SHOCK [None]
  - THERAPY NON-RESPONDER [None]
